FAERS Safety Report 8215222-1 (Version None)
Quarter: 2012Q1

REPORT INFORMATION
  Report Type: 
  Country: None (occurrence: None)
  Receive Date: 20120229
  Receipt Date: 20110920
  Transmission Date: 20120608
  Serious: Yes (Other)
  Sender: FDA-Public Use
  Company Number: PHHY2011US08446

PATIENT
  Age: 57 Year
  Sex: Male

DRUGS (7)
  1. WARFARIN SODIUM [Concomitant]
  2. VALSARTAN [Concomitant]
  3. LOVAZA [Concomitant]
  4. ALISKIREN [Concomitant]
  5. FLECAINIDE ACETATE [Concomitant]
  6. NEORAL [Suspect]
     Indication: RENAL TRANSPLANT
     Dosage: 75 MG, BID, ORAL
     Route: 048
     Dates: start: 20000308
  7. LANTUS [Concomitant]

REACTIONS (4)
  - KIDNEY TRANSPLANT REJECTION [None]
  - RENAL IMPAIRMENT [None]
  - CELLULITIS [None]
  - BLOOD CREATININE INCREASED [None]
